FAERS Safety Report 9139409 (Version 2)
Quarter: 2013Q1

REPORT INFORMATION
  Report Type: Spontaneous
  Country: US (occurrence: US)
  Receive Date: 20130305
  Receipt Date: 20130321
  Transmission Date: 20140127
  Serious: Yes (Other)
  Sender: FDA-Public Use
  Company Number: US-PFIZER INC-2013076436

PATIENT
  Age: 52 Year
  Sex: Female
  Weight: 87.1 kg

DRUGS (5)
  1. LYRICA [Suspect]
     Indication: NERVE INJURY
     Dosage: 75 MG, 1X/DAY
  2. LIPITOR [Suspect]
     Indication: BLOOD CHOLESTEROL ABNORMAL
     Dosage: 20 MG, 1X/DAY
  3. JANUMET [Concomitant]
     Indication: DIABETES MELLITUS
     Dosage: UNK
  4. ACTOS [Concomitant]
     Indication: DIABETES MELLITUS
     Dosage: UNK
  5. GLIPIZIDE [Concomitant]
     Indication: DIABETES MELLITUS
     Dosage: UNK

REACTIONS (2)
  - Uterine leiomyoma [Recovered/Resolved]
  - Malaise [Recovered/Resolved]
